FAERS Safety Report 15428335 (Version 1)
Quarter: 2018Q3

REPORT INFORMATION
  Report Type: Spontaneous
  Country: US (occurrence: US)
  Receive Date: 20180926
  Receipt Date: 20180926
  Transmission Date: 20181010
  Serious: Yes (Death, Other)
  Sender: FDA-Public Use
  Company Number: US-ASTELLAS-2018US041486

PATIENT
  Age: 38 Year
  Sex: Male

DRUGS (2)
  1. MICAFUNGIN [Suspect]
     Active Substance: MICAFUNGIN
     Indication: CANDIDA INFECTION
  2. MICAFUNGIN [Suspect]
     Active Substance: MICAFUNGIN
     Indication: CANDIDA INFECTION
     Dosage: UNK UNK, UNKNOWN FREQ.
     Route: 065

REACTIONS (8)
  - Fusarium infection [Unknown]
  - Mucormycosis [Unknown]
  - Trichosporon infection [Unknown]
  - Aspergillus infection [Unknown]
  - Candida infection [Unknown]
  - Fungal infection [Unknown]
  - General physical health deterioration [Unknown]
  - Fungal infection [Fatal]
